FAERS Safety Report 24625537 (Version 1)
Quarter: 2024Q4

REPORT INFORMATION
  Report Type: Spontaneous
  Country: IL (occurrence: IL)
  Receive Date: 20241115
  Receipt Date: 20241115
  Transmission Date: 20250115
  Serious: Yes (Hospitalization, Other)
  Sender: MERCK
  Company Number: IL-009507513-2411ISR005706

PATIENT
  Age: 39 Year
  Sex: Female

DRUGS (2)
  1. KEYTRUDA [Suspect]
     Active Substance: PEMBROLIZUMAB
     Dosage: UNK
  2. KEYTRUDA [Suspect]
     Active Substance: PEMBROLIZUMAB
     Dosage: TWO MORE DOSES
     Dates: start: 202408, end: 202408

REACTIONS (4)
  - Syncope [Unknown]
  - Salpingo-oophorectomy bilateral [Recovered/Resolved]
  - Chemotherapy [Recovered/Resolved]
  - Troponin increased [Unknown]

NARRATIVE: CASE EVENT DATE: 20240101
